FAERS Safety Report 10186092 (Version 2)
Quarter: 2014Q2

REPORT INFORMATION
  Report Type: Report from Study
  Country: CO (occurrence: CO)
  Receive Date: 20140521
  Receipt Date: 20140606
  Transmission Date: 20141212
  Serious: Yes (Death, Other)
  Sender: FDA-Public Use
  Company Number: CO-ABBVIE-14P-036-1239435-00

PATIENT
  Age: 71 Year
  Sex: Male
  Weight: 80 kg

DRUGS (1)
  1. HUMIRA [Suspect]
     Indication: PSORIASIS
     Route: 058
     Dates: start: 20111028, end: 20140320

REACTIONS (2)
  - Prostate cancer metastatic [Fatal]
  - General physical health deterioration [Not Recovered/Not Resolved]
